FAERS Safety Report 5956735-2 (Version None)
Quarter: 2008Q4

REPORT INFORMATION
  Report Type: 
  Country: None (occurrence: None)
  Receive Date: 20081118
  Receipt Date: 20081114
  Transmission Date: 20090506
  Serious: No
  Sender: FDA-Public Use
  Company Number: US-GILEAD-2008-0018920

PATIENT
  Sex: Male

DRUGS (6)
  1. LETAIRIS [Suspect]
     Indication: PULMONARY HYPERTENSION
     Dates: start: 20080919, end: 20080924
  2. LETAIRIS [Suspect]
     Route: 048
     Dates: start: 20080930, end: 20081006
  3. FLOMAX [Concomitant]
     Route: 048
  4. ALDACTONE [Concomitant]
     Route: 048
     Dates: end: 20080901
  5. ALDACTONE [Concomitant]
     Route: 048
     Dates: start: 20080901
  6. NADOLOL [Concomitant]
     Route: 048

REACTIONS (3)
  - EYE SWELLING [None]
  - SWELLING [None]
  - SWELLING FACE [None]
